FAERS Safety Report 7073362-7 (Version None)
Quarter: 2010Q4

REPORT INFORMATION
  Report Type: 
  Country: None (occurrence: None)
  Receive Date: 20101029
  Receipt Date: 20100608
  Transmission Date: 20110411
  Serious: No
  Sender: FDA-Public Use
  Company Number: A0863772A

PATIENT
  Age: 65 Year
  Sex: Female

DRUGS (8)
  1. ADVAIR DISKUS 100/50 [Suspect]
     Indication: ASTHMA
     Dosage: 1PUFF TWICE PER DAY
     Route: 055
     Dates: start: 20100201
  2. ZOLOFT [Concomitant]
  3. KLONOPIN [Concomitant]
  4. BUSPAR [Concomitant]
  5. PREVACID [Concomitant]
  6. IRON [Concomitant]
  7. STOOL SOFTENER [Concomitant]
  8. EXCEDRIN (MIGRAINE) [Concomitant]

REACTIONS (3)
  - DYSPHONIA [None]
  - DYSPNOEA [None]
  - HEADACHE [None]
